FAERS Safety Report 5140987-5 (Version None)
Quarter: 2006Q4

REPORT INFORMATION
  Report Type: 
  Country: None (occurrence: None)
  Receive Date: 20061027
  Receipt Date: 20061027
  Transmission Date: 20070319
  Serious: Yes (Life-Threatening, Hospitalization)
  Sender: FDA-Public Use
  Company Number: None

PATIENT
  Sex: Female
  Weight: 57 kg

DRUGS (2)
  1. GLEEVEC [Suspect]
     Indication: CHRONIC MYELOID LEUKAEMIA
     Dosage: 1 TABLET -400 MG- ONCE DAILY PO
     Route: 048
     Dates: start: 20060922, end: 20060929
  2. GLEEVEC [Suspect]
     Indication: CHRONIC MYELOID LEUKAEMIA
     Dosage: 1 TABLET -400 MG- ONCE DAILY PO
     Route: 048
     Dates: start: 20061004, end: 20061016

REACTIONS (10)
  - ANXIETY [None]
  - CHILLS [None]
  - CHRONIC MYELOID LEUKAEMIA [None]
  - HAEMODIALYSIS [None]
  - HYPERHIDROSIS [None]
  - NEPHRITIS INTERSTITIAL [None]
  - PLATELET COUNT INCREASED [None]
  - RENAL FAILURE ACUTE [None]
  - RENAL TUBULAR NECROSIS [None]
  - STRESS [None]
